FAERS Safety Report 9116966 (Version 3)
Quarter: 2013Q3

REPORT INFORMATION
  Report Type: Spontaneous
  Country: US (occurrence: US)
  Receive Date: 20130225
  Receipt Date: 20130716
  Transmission Date: 20140515
  Serious: Yes (Hospitalization)
  Sender: FDA-Public Use
  Company Number: US-BAYER-2013-022740

PATIENT
  Age: 26 Year
  Sex: Female
  Weight: 113.38 kg

DRUGS (4)
  1. YASMIN [Suspect]
     Indication: PREMENSTRUAL SYNDROME
     Dosage: UNK
     Dates: start: 20060428, end: 20060722
  2. TORADOL [Concomitant]
  3. IBUPROFEN [Concomitant]
     Indication: ANALGESIC THERAPY
     Dosage: 200 MG, ONCE
  4. MULTIVITAMIN [Concomitant]
     Indication: NUTRITIONAL SUPPLEMENTATION
     Dosage: 1 DF, DAILY

REACTIONS (7)
  - Deep vein thrombosis [Not Recovered/Not Resolved]
  - Thrombophlebitis superficial [None]
  - Injury [Not Recovered/Not Resolved]
  - Pain [Not Recovered/Not Resolved]
  - Fear of disease [None]
  - Pain [None]
  - Off label use [None]
